FAERS Safety Report 4961166-8 (Version None)
Quarter: 2006Q1

REPORT INFORMATION
  Report Type: 
  Country: None (occurrence: None)
  Receive Date: 20060201
  Receipt Date: 20051117
  Transmission Date: 20060701
  Serious: No
  Sender: FDA-Public Use
  Company Number: 2005PV005177

PATIENT
  Age: 62 Year
  Sex: Female
  Weight: 128.8216 kg

DRUGS (12)
  1. BYETTA [Suspect]
     Indication: DIABETES MELLITUS NON-INSULIN-DEPENDENT
     Dosage: SEE IMAGE
     Route: 058
     Dates: start: 20051020, end: 20051026
  2. BYETTA [Suspect]
     Indication: DIABETES MELLITUS NON-INSULIN-DEPENDENT
     Dosage: SEE IMAGE
     Route: 058
     Dates: start: 20051101, end: 20051116
  3. LANTUS [Concomitant]
  4. NOVOLOG [Concomitant]
  5. COZAAR [Concomitant]
  6. LASIX [Concomitant]
  7. DYAZIDE [Concomitant]
  8. COREG [Concomitant]
  9. PLAVIX [Concomitant]
  10. LIPITOR [Concomitant]
  11. NEURONTIN [Concomitant]
  12. ASPIRIN [Concomitant]

REACTIONS (4)
  - GASTROOESOPHAGEAL REFLUX DISEASE [None]
  - PARAESTHESIA [None]
  - VISION BLURRED [None]
  - VOMITING [None]
